FAERS Safety Report 25239821 (Version 1)
Quarter: 2025Q2

REPORT INFORMATION
  Report Type: Spontaneous
  Country: US (occurrence: None)
  Receive Date: 20250425
  Receipt Date: 20250425
  Transmission Date: 20250717
  Serious: No
  Sender: FDA-CTU
  Company Number: None

PATIENT
  Age: 72 Year
  Sex: Male
  Weight: 109.32 kg

DRUGS (2)
  1. TREMFYA [Suspect]
     Active Substance: GUSELKUMAB
     Indication: Psoriatic arthropathy
     Route: 058
     Dates: start: 202103
  2. RECLAST [Suspect]
     Active Substance: ZOLEDRONIC ACID

REACTIONS (4)
  - Sepsis [None]
  - Gallbladder disorder [None]
  - Influenza [None]
  - Illness [None]
